FAERS Safety Report 14014444 (Version 1)
Quarter: 2017Q3

REPORT INFORMATION
  Report Type: Report from Study
  Country: None (occurrence: US)
  Receive Date: 20170927
  Receipt Date: 20170927
  Transmission Date: 20171128
  Serious: Yes (Other)
  Sender: FDA-Public Use
  Company Number: US-ABBVIE-17K-163-2046758-00

PATIENT
  Age: 48 Year
  Sex: Female

DRUGS (1)
  1. HUMIRA [Suspect]
     Active Substance: ADALIMUMAB
     Indication: PSORIASIS
     Route: 058

REACTIONS (12)
  - Depression [Unknown]
  - Adverse drug reaction [Unknown]
  - Systemic lupus erythematosus [Unknown]
  - Anxiety [Unknown]
  - Arthralgia [Unknown]
  - Inflammation [Unknown]
  - Stress [Unknown]
  - Hypoaesthesia [Unknown]
  - Rheumatoid arthritis [Unknown]
  - Psoriasis [Unknown]
  - Therapeutic response shortened [Unknown]
  - Pain [Unknown]

NARRATIVE: CASE EVENT DATE: 20170603
